FAERS Safety Report 9106161 (Version 1)
Quarter: 2013Q1

REPORT INFORMATION
  Report Type: Spontaneous
  Country: ES (occurrence: ES)
  Receive Date: 20130221
  Receipt Date: 20130221
  Transmission Date: 20140127
  Serious: Yes (Other)
  Sender: FDA-Public Use
  Company Number: ES-PFIZER INC-2013060786

PATIENT
  Sex: Female

DRUGS (2)
  1. AZITHROMYCIN [Suspect]
     Dosage: UNK
     Route: 048
  2. AZITHROMYCIN [Suspect]
     Dosage: UNK
     Route: 048

REACTIONS (1)
  - Haematochezia [Unknown]
